FAERS Safety Report 22225787 (Version 1)
Quarter: 2023Q2

REPORT INFORMATION
  Report Type: Spontaneous
  Country: US (occurrence: US)
  Receive Date: 20230418
  Receipt Date: 20230418
  Transmission Date: 20230722
  Serious: No
  Sender: FDA-Public Use
  Company Number: US-ALKERMES INC.-ALK-2023-001597

PATIENT
  Sex: Male

DRUGS (1)
  1. ARISTADA [Suspect]
     Active Substance: ARIPIPRAZOLE LAUROXIL
     Indication: Product used for unknown indication
     Dosage: 882 MILLIGRAM
     Route: 065

REACTIONS (3)
  - Accidental exposure to product [Recovered/Resolved]
  - Injection site movement impairment [Unknown]
  - Injection site pain [Recovered/Resolved]
